FAERS Safety Report 12676717 (Version 2)
Quarter: 2016Q3

REPORT INFORMATION
  Report Type: Report from Study
  Country: FR (occurrence: FR)
  Receive Date: 20160823
  Receipt Date: 20160906
  Transmission Date: 20161109
  Serious: Yes (Hospitalization)
  Sender: FDA-Public Use
  Company Number: FR-SA-2016SA151686

PATIENT
  Age: 78 Year
  Sex: Male

DRUGS (2)
  1. CABAZITAXEL [Suspect]
     Active Substance: CABAZITAXEL
     Route: 065
     Dates: start: 20160803, end: 20160803
  2. CABAZITAXEL [Suspect]
     Active Substance: CABAZITAXEL
     Route: 065
     Dates: start: 20160511, end: 20160511

REACTIONS (1)
  - Sepsis [Recovering/Resolving]

NARRATIVE: CASE EVENT DATE: 20160808
